FAERS Safety Report 4709592-6 (Version None)
Quarter: 2005Q3

REPORT INFORMATION
  Report Type: 
  Country: None (occurrence: None)
  Receive Date: 20050706
  Receipt Date: 20050624
  Transmission Date: 20060218
  Serious: Yes (Other)
  Sender: FDA-Public Use
  Company Number: 200510404BNE

PATIENT
  Sex: Female

DRUGS (5)
  1. ASPIRIN [Suspect]
  2. DIPYRIDAMOLE [Suspect]
  3. PRAVASTATIN [Concomitant]
  4. THIAZIDE [Concomitant]
  5. ACE INHIBITOR [Concomitant]

REACTIONS (2)
  - DRUG INTOLERANCE [None]
  - TRANSIENT ISCHAEMIC ATTACK [None]
